FAERS Safety Report 14952358 (Version 5)
Quarter: 2018Q3

REPORT INFORMATION
  Report Type: Spontaneous
  Country: US (occurrence: US)
  Receive Date: 20180530
  Receipt Date: 20180904
  Transmission Date: 20181010
  Serious: Yes (Other)
  Sender: FDA-Public Use
  Company Number: US-PFIZER INC-2018215355

PATIENT
  Age: 66 Year
  Sex: Female

DRUGS (2)
  1. IBRANCE [Suspect]
     Active Substance: PALBOCICLIB
     Indication: BREAST CANCER METASTATIC
     Dosage: 125 MG, CYCLIC (DAILY FOR 21 DAYS)
     Route: 048
     Dates: start: 20180503
  2. IBRANCE [Suspect]
     Active Substance: PALBOCICLIB
     Indication: BREAST CANCER FEMALE
     Dosage: 125 MG, CYCLIC (21 DAYS ON THEN 7 OFF)/(DAY 1?21/28)
     Route: 048
     Dates: start: 20180504

REACTIONS (13)
  - Nausea [Unknown]
  - Increased tendency to bruise [Unknown]
  - Muscle spasms [Unknown]
  - Rash [Unknown]
  - Fatigue [Unknown]
  - Dry skin [Unknown]
  - Alopecia [Unknown]
  - Paraesthesia [Unknown]
  - Insomnia [Unknown]
  - Hypoaesthesia [Unknown]
  - Plantar fasciitis [Unknown]
  - Stomatitis [Unknown]
  - Blood glucose increased [Unknown]

NARRATIVE: CASE EVENT DATE: 20180524
